FAERS Safety Report 13679802 (Version 1)
Quarter: 2017Q2

REPORT INFORMATION
  Report Type: Spontaneous
  Country: IT (occurrence: IT)
  Receive Date: 20170622
  Receipt Date: 20170622
  Transmission Date: 20170830
  Serious: Yes (Hospitalization, Other)
  Sender: FDA-Public Use
  Company Number: IT-MYLANLABS-2017M1036735

PATIENT

DRUGS (1)
  1. PIOGLITAZONE. [Suspect]
     Active Substance: PIOGLITAZONE
     Indication: TYPE 2 DIABETES MELLITUS
     Dosage: 30 MG DAILY
     Dates: start: 20120209, end: 20170130

REACTIONS (2)
  - Transitional cell carcinoma [Recovered/Resolved with Sequelae]
  - Haematuria [Recovered/Resolved with Sequelae]
